FAERS Safety Report 5408113-2 (Version None)
Quarter: 2007Q3

REPORT INFORMATION
  Report Type: 
  Country: None (occurrence: None)
  Receive Date: 20070806
  Receipt Date: 20070806
  Transmission Date: 20080115
  Serious: Yes (Hospitalization)
  Sender: FDA-Public Use
  Company Number: None

PATIENT
  Age: 81 Year
  Sex: Male
  Weight: 107.9561 kg

DRUGS (1)
  1. DIGOXIN [Suspect]
     Dosage: 0.25MG EVERY DAY PO
     Route: 048
     Dates: start: 19961104, end: 20070626

REACTIONS (2)
  - BRADYCARDIA [None]
  - DIZZINESS [None]
